FAERS Safety Report 21779825 (Version 1)
Quarter: 2022Q4

REPORT INFORMATION
  Report Type: Report from Study
  Country: US (occurrence: US)
  Receive Date: 20221226
  Receipt Date: 20221226
  Transmission Date: 20230112
  Serious: Yes (Other)
  Sender: FDA-Public Use
  Company Number: US-ABBVIE-4249395

PATIENT
  Sex: Female

DRUGS (1)
  1. RINVOQ [Suspect]
     Active Substance: UPADACITINIB
     Indication: Rheumatoid arthritis
     Dosage: THE DRUG START DATE WAS 19 FEB 2022.
     Route: 048

REACTIONS (6)
  - Cardiomyopathy [Unknown]
  - Ventricular arrhythmia [Unknown]
  - Pain [Recovering/Resolving]
  - Silent myocardial infarction [Unknown]
  - Contusion [Unknown]
  - Arthralgia [Unknown]

NARRATIVE: CASE EVENT DATE: 20220101
